FAERS Safety Report 4373097-5 (Version None)
Quarter: 2004Q2

REPORT INFORMATION
  Report Type: 
  Country: None (occurrence: None)
  Receive Date: 20040526
  Receipt Date: 20040514
  Transmission Date: 20050107
  Serious: Yes (Hospitalization, Other)
  Sender: FDA-Public Use
  Company Number: 2004032454

PATIENT
  Age: 70 Year
  Sex: Female

DRUGS (6)
  1. NEURONTIN [Suspect]
     Indication: EPILEPSY
     Dosage: 800 MG
     Dates: start: 20040101, end: 20040101
  2. ANTIEPILEPTICS (ANTIEPILEPTICS) [Concomitant]
  3. PHENOBARBITAL TAB [Concomitant]
  4. VERAPAMIL HCL [Concomitant]
  5. ANTIHYPERTENSIVES (ANTIHYPERTENSIVES) [Concomitant]
  6. PREDNISONE TAB [Concomitant]

REACTIONS (7)
  - DYSPHAGIA [None]
  - INFLAMMATION [None]
  - LIMB INJURY [None]
  - PLATELET COUNT DECREASED [None]
  - RENAL DISORDER [None]
  - TOXIC SKIN ERUPTION [None]
  - WHITE BLOOD CELL COUNT DECREASED [None]
